FAERS Safety Report 9282886 (Version 3)
Quarter: 2013Q3

REPORT INFORMATION
  Report Type: Spontaneous
  Country: US (occurrence: US)
  Receive Date: 20130510
  Receipt Date: 20130723
  Transmission Date: 20140515
  Serious: Yes (Hospitalization, Other)
  Sender: FDA-Public Use
  Company Number: US-JNJFOC-20130415537

PATIENT
  Sex: Female
  Weight: 81.65 kg

DRUGS (7)
  1. RISPERDAL CONSTA [Suspect]
     Indication: SCHIZOAFFECTIVE DISORDER
     Route: 030
  2. RISPERDAL CONSTA [Suspect]
     Indication: SCHIZOAFFECTIVE DISORDER
     Route: 030
     Dates: start: 2003, end: 2012
  3. RISPERDAL [Suspect]
     Indication: SCHIZOAFFECTIVE DISORDER
     Route: 048
  4. INVEGA [Suspect]
     Indication: PARANOIA
     Route: 048
  5. INVEGA [Suspect]
     Indication: SCHIZOPHRENIA
     Route: 048
  6. ZOCOR [Concomitant]
     Route: 065
  7. PEPCID [Concomitant]
     Route: 065

REACTIONS (8)
  - Aggression [Recovered/Resolved]
  - Weight increased [Not Recovered/Not Resolved]
  - Thinking abnormal [Unknown]
  - Weight decreased [Recovered/Resolved]
  - Exposure during pregnancy [Unknown]
  - Personality disorder [Unknown]
  - Social avoidant behaviour [Unknown]
  - White blood cell count decreased [Unknown]
